FAERS Safety Report 4989956-6 (Version None)
Quarter: 2006Q2

REPORT INFORMATION
  Report Type: 
  Country: None (occurrence: None)
  Receive Date: 20060427
  Receipt Date: 20060415
  Transmission Date: 20061013
  Serious: Yes (Other)
  Sender: FDA-Public Use
  Company Number: 224440

PATIENT
  Sex: Female

DRUGS (1)
  1. HERCEPTIN [Suspect]
     Dosage: INTRAVENOUS
     Route: 042

REACTIONS (1)
  - TUBERCULOSIS [None]
